FAERS Safety Report 19456109 (Version 2)
Quarter: 2021Q3

REPORT INFORMATION
  Report Type: Report from Study
  Country: None (occurrence: US)
  Receive Date: 20210624
  Receipt Date: 20210922
  Transmission Date: 20211014
  Serious: Yes (Hospitalization, Other)
  Sender: FDA-Public Use
  Company Number: US-ABBVIE-21K-163-3961783-00

PATIENT
  Sex: Female
  Weight: 78.54 kg

DRUGS (14)
  1. RESTASIS [Concomitant]
     Active Substance: CYCLOSPORINE
     Indication: DRY EYE
  2. BREO ELLIPTA [Concomitant]
     Active Substance: FLUTICASONE FUROATE\VILANTEROL TRIFENATATE
     Indication: ASTHMA
  3. CLOBETASOL [Concomitant]
     Active Substance: CLOBETASOL
     Indication: PSORIASIS
  4. ASPIRIN. [Concomitant]
     Active Substance: ASPIRIN
     Indication: ANTICOAGULANT THERAPY
  5. FOLIC ACID. [Concomitant]
     Active Substance: FOLIC ACID
     Indication: ALOPECIA
  6. VITAMIN D3 [Concomitant]
     Active Substance: CHOLECALCIFEROL
     Indication: VITAMIN D DEFICIENCY
  7. EZETIMIBE. [Concomitant]
     Active Substance: EZETIMIBE
     Indication: BLOOD CHOLESTEROL
  8. HUMIRA [Suspect]
     Active Substance: ADALIMUMAB
     Indication: PSORIATIC ARTHROPATHY
     Dosage: CITRATE FREE
     Route: 058
     Dates: start: 20190916
  9. CALCIUM [Concomitant]
     Active Substance: CALCIUM
     Indication: BONE LOSS
  10. ALBUTEROL. [Concomitant]
     Active Substance: ALBUTEROL
     Indication: ASTHMA
  11. METFORMIN [Concomitant]
     Active Substance: METFORMIN HYDROCHLORIDE
     Indication: GLUCOSE TOLERANCE IMPAIRED
  12. LISINOPRIL. [Concomitant]
     Active Substance: LISINOPRIL
     Indication: BLOOD PRESSURE MEASUREMENT
  13. CLOPIDOGREL [Concomitant]
     Active Substance: CLOPIDOGREL BISULFATE
     Indication: ANTICOAGULANT THERAPY
  14. ELIQUIS [Concomitant]
     Active Substance: APIXABAN
     Indication: ANTICOAGULANT THERAPY

REACTIONS (29)
  - Artery dissection [Recovered/Resolved]
  - Goitre [Not Recovered/Not Resolved]
  - Antiphospholipid antibodies positive [Not Recovered/Not Resolved]
  - Leukocytosis [Recovered/Resolved]
  - Type 2 diabetes mellitus [Not Recovered/Not Resolved]
  - Gastrooesophageal reflux disease [Not Recovered/Not Resolved]
  - Dermatitis [Recovered/Resolved]
  - Large intestine polyp [Not Recovered/Not Resolved]
  - Colitis ischaemic [Not Recovered/Not Resolved]
  - Hyperhidrosis [Unknown]
  - Psoriasis [Not Recovered/Not Resolved]
  - Arthralgia [Recovered/Resolved]
  - Dry eye [Recovered/Resolved]
  - Asthma [Not Recovered/Not Resolved]
  - Fungal skin infection [Recovered/Resolved]
  - Cardiac murmur [Not Recovered/Not Resolved]
  - Dermatophytosis of nail [Not Recovered/Not Resolved]
  - Hyperkeratosis [Not Recovered/Not Resolved]
  - Essential hypertension [Not Recovered/Not Resolved]
  - Hyperlipidaemia [Not Recovered/Not Resolved]
  - Gastrointestinal haemorrhage [Recovered/Resolved]
  - Eustachian tube dysfunction [Recovered/Resolved]
  - Sinusitis [Recovered/Resolved]
  - Abdominal pain [Recovered/Resolved]
  - Deafness neurosensory [Recovered/Resolved]
  - Sleep apnoea syndrome [Not Recovered/Not Resolved]
  - Rectal haemorrhage [Unknown]
  - Coeliac artery aneurysm [Recovered/Resolved]
  - Bronchitis [Recovered/Resolved]
